FAERS Safety Report 20382547 (Version 1)
Quarter: 2022Q1

REPORT INFORMATION
  Report Type: Spontaneous
  Country: US (occurrence: US)
  Receive Date: 20220127
  Receipt Date: 20220127
  Transmission Date: 20220424
  Serious: No
  Sender: FDA-Public Use
  Company Number: US-PCCINC-2021-PEL-000304

PATIENT

DRUGS (4)
  1. GABLOFEN [Suspect]
     Active Substance: BACLOFEN
     Indication: Muscle spasticity
     Dosage: 200 MICROGRAM PER DAY
     Route: 037
  2. GABLOFEN [Suspect]
     Active Substance: BACLOFEN
     Indication: Spinal cord injury
     Dosage: BOLUS
     Route: 037
  3. BACLOFEN [Concomitant]
     Active Substance: BACLOFEN
     Indication: Muscle spasticity
     Dosage: UNK
     Route: 048
  4. BACLOFEN [Concomitant]
     Active Substance: BACLOFEN
     Indication: Spinal cord injury

REACTIONS (6)
  - Muscle spasticity [Recovered/Resolved]
  - Muscle rigidity [Recovered/Resolved]
  - Dizziness [Recovered/Resolved]
  - Nausea [Recovered/Resolved]
  - Device material issue [Recovered/Resolved]
  - Device leakage [Recovered/Resolved]
